FAERS Safety Report 18507889 (Version 2)
Quarter: 2020Q4

REPORT INFORMATION
  Report Type: Spontaneous
  Country: US (occurrence: US)
  Receive Date: 20201116
  Receipt Date: 20201202
  Transmission Date: 20210114
  Serious: Yes (Hospitalization, Disabling, Congenital Anomaly, Other)
  Sender: FDA-Public Use
  Company Number: US-PURDUE-USA-2020-0176521

PATIENT
  Sex: Female

DRUGS (6)
  1. MORPHINE SULFATE EXTENDED-RELEASE TABLETS (RHODES 74-769, 74-862) [Suspect]
     Active Substance: MORPHINE SULFATE
     Indication: PRODUCT USED FOR UNKNOWN INDICATION
     Dosage: UNKNOWN
     Route: 048
  2. ROXICET [Suspect]
     Active Substance: ACETAMINOPHEN\OXYCODONE HYDROCHLORIDE
     Indication: ANALGESIC THERAPY
  3. TRAMADOL. [Suspect]
     Active Substance: TRAMADOL
     Indication: PRODUCT USED FOR UNKNOWN INDICATION
     Dosage: UNKNOWN
     Route: 065
  4. TORADOL [Suspect]
     Active Substance: KETOROLAC TROMETHAMINE
     Indication: PRODUCT USED FOR UNKNOWN INDICATION
     Dosage: UNKNOWN DOSAGE
     Route: 065
  5. ROXICET [Suspect]
     Active Substance: ACETAMINOPHEN\OXYCODONE HYDROCHLORIDE
     Indication: PRODUCT USED FOR UNKNOWN INDICATION
     Dosage: UNKNOWN
     Route: 065
  6. FENTANYL. [Suspect]
     Active Substance: FENTANYL
     Indication: PRODUCT USED FOR UNKNOWN INDICATION
     Dosage: UNKNOWN
     Route: 065

REACTIONS (24)
  - Judgement impaired [Unknown]
  - Developmental delay [Unknown]
  - Toxicity to various agents [Unknown]
  - Hormone level abnormal [Unknown]
  - Disturbance in attention [Unknown]
  - Dizziness [Unknown]
  - Binocular eye movement disorder [Unknown]
  - Balance disorder [Unknown]
  - Weight increased [Unknown]
  - Motion sickness [Unknown]
  - Myopia [Unknown]
  - Learning disability [Unknown]
  - Congenital anomaly [Unknown]
  - Epiphyses premature fusion [Unknown]
  - Asthma [Unknown]
  - Personality change [Unknown]
  - Skin disorder [Unknown]
  - Astigmatism [Unknown]
  - Mood altered [Unknown]
  - Respiratory disorder [Unknown]
  - Brain injury [Not Recovered/Not Resolved]
  - Dyspnoea [Unknown]
  - Hypersensitivity [Unknown]
  - Headache [Not Recovered/Not Resolved]

NARRATIVE: CASE EVENT DATE: 2016
